FAERS Safety Report 16169878 (Version 1)
Quarter: 2019Q2

REPORT INFORMATION
  Report Type: Spontaneous
  Country: US (occurrence: US)
  Receive Date: 20190408
  Receipt Date: 20190408
  Transmission Date: 20190711
  Serious: Yes (Hospitalization, Other)
  Sender: FDA-Public Use
  Company Number: US-MYLANLABS-2019M1031417

PATIENT
  Age: 34 Year
  Sex: Male

DRUGS (1)
  1. LOPERAMIDE [Suspect]
     Active Substance: LOPERAMIDE
     Indication: PRODUCT USED FOR UNKNOWN INDICATION
     Dosage: INGESTED 50 TABLETS AT ONCE
     Route: 048

REACTIONS (7)
  - Ventricular tachycardia [Recovering/Resolving]
  - Stress cardiomyopathy [Recovered/Resolved]
  - Torsade de pointes [Recovering/Resolving]
  - Drug abuse [Recovering/Resolving]
  - Intentional overdose [Recovering/Resolving]
  - Syncope [Recovering/Resolving]
  - Cardiac arrest [Recovering/Resolving]
